FAERS Safety Report 22653764 (Version 15)
Quarter: 2024Q2

REPORT INFORMATION
  Report Type: Spontaneous
  Country: KR (occurrence: KR)
  Receive Date: 20230629
  Receipt Date: 20240501
  Transmission Date: 20240716
  Serious: No
  Sender: FDA-Public Use
  Company Number: KR-PFIZER INC-PV202300108124

PATIENT
  Age: 13 Year
  Sex: Male

DRUGS (3)
  1. GENOTROPIN [Suspect]
     Active Substance: SOMATROPIN
     Indication: Short stature
     Dosage: 6 TIMES PER WEEK
     Dates: start: 20230201
  2. GENOTROPIN [Suspect]
     Active Substance: SOMATROPIN
     Dosage: 6 TIMES PER WEEK
  3. GENOTROPIN [Suspect]
     Active Substance: SOMATROPIN
     Dosage: 6 TIMES PER WEEK

REACTIONS (3)
  - Poor quality device used [Unknown]
  - Product contamination physical [Unknown]
  - Product contamination physical [Unknown]

NARRATIVE: CASE EVENT DATE: 20230101
